FAERS Safety Report 5760674-X (Version None)
Quarter: 2008Q2

REPORT INFORMATION
  Report Type: 
  Country: None (occurrence: None)
  Receive Date: 20080606
  Receipt Date: 20080603
  Transmission Date: 20081010
  Serious: Yes (Other)
  Sender: FDA-Public Use
  Company Number: US-BAYER-200824797NA

PATIENT
  Age: 20 Year
  Sex: Female
  Weight: 99 kg

DRUGS (1)
  1. TRI-LEVLEN 28 [Suspect]
     Indication: CONTRACEPTION
     Dates: start: 20060901, end: 20061201

REACTIONS (1)
  - THROMBOSIS [None]
